FAERS Safety Report 15297093 (Version 1)
Quarter: 2018Q3

REPORT INFORMATION
  Report Type: Spontaneous
  Country: HR (occurrence: HR)
  Receive Date: 20180820
  Receipt Date: 20180820
  Transmission Date: 20181010
  Serious: Yes (Other)
  Sender: FDA-Public Use
  Company Number: HR-TEVA-2018-HR-944720

PATIENT
  Sex: Female

DRUGS (3)
  1. PRAXITEN [Suspect]
     Active Substance: OXAZEPAM
     Dosage: SEVERAL TABLETS
     Route: 048
     Dates: start: 20180620, end: 20180620
  2. SANVAL [Suspect]
     Active Substance: ZOLPIDEM TARTRATE
     Dosage: 100 MILLIGRAM DAILY;
     Route: 048
     Dates: start: 20180620, end: 20180620
  3. LORSILAN [Suspect]
     Active Substance: LORAZEPAM
     Dosage: 50 MILLIGRAM DAILY;
     Route: 048
     Dates: start: 20180620, end: 20180620

REACTIONS (3)
  - Intentional overdose [Unknown]
  - Somnolence [Unknown]
  - Suicide attempt [Unknown]

NARRATIVE: CASE EVENT DATE: 20180620
